FAERS Safety Report 9108312 (Version 2)
Quarter: 2013Q2

REPORT INFORMATION
  Report Type: Spontaneous
  Country: US (occurrence: US)
  Receive Date: 20130222
  Receipt Date: 20130411
  Transmission Date: 20140414
  Serious: Yes (Hospitalization, Other)
  Sender: FDA-Public Use
  Company Number: US-B.I. PHARMACEUTICALS,INC./RIDGEFIELD-2013-BI-04342BP

PATIENT
  Age: 79 Year
  Sex: Male

DRUGS (15)
  1. PRADAXA [Suspect]
     Indication: ATRIAL FIBRILLATION
     Route: 048
     Dates: start: 20111228
  2. TYLENOL [Concomitant]
     Indication: PAIN
  3. ALBUTEROL [Concomitant]
     Indication: CHRONIC OBSTRUCTIVE PULMONARY DISEASE
  4. ADVAIR [Concomitant]
     Indication: CHRONIC OBSTRUCTIVE PULMONARY DISEASE
  5. DILTIAZEM [Concomitant]
     Indication: ATRIAL FIBRILLATION
     Dates: start: 20111228
  6. LASIX [Concomitant]
     Dosage: 20 MG
  7. NOVOLOG [Concomitant]
  8. LOVENOX [Concomitant]
  9. LOVASTATIN [Concomitant]
  10. METFORMIN [Concomitant]
  11. NIACIN [Concomitant]
  12. KCL [Concomitant]
  13. ZOLOFT [Concomitant]
  14. TAMULUS [Concomitant]
  15. SPIRIT [Concomitant]

REACTIONS (4)
  - Gastrointestinal haemorrhage [Recovered/Resolved]
  - Contusion [Recovered/Resolved]
  - Haemarthrosis [Recovered/Resolved]
  - Melaena [Recovered/Resolved]
